FAERS Safety Report 5381332-X (Version None)
Quarter: 2007Q2

REPORT INFORMATION
  Report Type: 
  Country: None (occurrence: None)
  Receive Date: 20070629
  Receipt Date: 20061023
  Transmission Date: 20071010
  Serious: Yes (Other)
  Sender: FDA-Public Use
  Company Number: 2006129384

PATIENT
  Age: 15 Year
  Sex: Male

DRUGS (1)
  1. ZOLOFT [Suspect]
     Indication: SOCIAL PHOBIA
     Dosage: (100 MG) - 2 YEARS

REACTIONS (1)
  - GYNAECOMASTIA [None]
